FAERS Safety Report 10264867 (Version 1)
Quarter: 2014Q2

REPORT INFORMATION
  Report Type: Spontaneous
  Country: US (occurrence: US)
  Receive Date: 20140627
  Receipt Date: 20140627
  Transmission Date: 20141212
  Serious: No
  Sender: FDA-Public Use
  Company Number: US-TEVA-490992USA

PATIENT
  Age: 18 Year
  Sex: Female
  Weight: 64.47 kg

DRUGS (1)
  1. PARAGARD 380A [Suspect]
     Indication: CONTRACEPTION
     Route: 015
     Dates: start: 20140414, end: 20140519

REACTIONS (3)
  - Ovarian cyst [Not Recovered/Not Resolved]
  - Vaginal haemorrhage [Unknown]
  - Pelvic pain [Unknown]
